APPROVED DRUG PRODUCT: TRANXENE
Active Ingredient: CLORAZEPATE DIPOTASSIUM
Strength: 7.5MG
Dosage Form/Route: TABLET;ORAL
Application: N017105 | Product #007 | TE Code: AB
Applicant: AJENAT PHARMACEUTICALS LLC
Approved: Approved Prior to Jan 1, 1982 | RLD: Yes | RS: No | Type: RX